FAERS Safety Report 4675008-1 (Version None)
Quarter: 2005Q2

REPORT INFORMATION
  Report Type: 
  Country: None (occurrence: None)
  Receive Date: 20050526
  Receipt Date: 20050520
  Transmission Date: 20051028
  Serious: Yes (Hospitalization)
  Sender: FDA-Public Use
  Company Number: JP-MERCK-0505USA02791

PATIENT
  Age: 71 Year
  Sex: Female

DRUGS (6)
  1. ZOCOR [Suspect]
     Indication: HYPERLIPIDAEMIA
     Route: 048
     Dates: start: 20040501, end: 20050501
  2. AMARYL [Suspect]
     Indication: DIABETES MELLITUS
     Route: 048
     Dates: start: 20040501, end: 20050501
  3. AMLODIN [Concomitant]
     Indication: HYPERTENSION
     Route: 048
     Dates: start: 20040201, end: 20050501
  4. CEPHADOL [Concomitant]
     Indication: DIZZINESS
     Route: 048
     Dates: start: 20010701, end: 20050501
  5. DEPAS [Concomitant]
     Indication: DIZZINESS
     Route: 048
     Dates: start: 20010701, end: 20050501
  6. ZOLPIDEM TARTRATE [Concomitant]
     Indication: INSOMNIA
     Route: 048
     Dates: start: 20030501, end: 20050501

REACTIONS (7)
  - ALANINE AMINOTRANSFERASE INCREASED [None]
  - ASPARTATE AMINOTRANSFERASE INCREASED [None]
  - BLOOD CREATINE PHOSPHOKINASE INCREASED [None]
  - BLOOD GLUCOSE ABNORMAL [None]
  - HYPOKALAEMIA [None]
  - MYALGIA [None]
  - QUADRIPLEGIA [None]
